FAERS Safety Report 23717625 (Version 3)
Quarter: 2024Q2

REPORT INFORMATION
  Report Type: Spontaneous
  Country: US (occurrence: US)
  Receive Date: 20240408
  Receipt Date: 20240429
  Transmission Date: 20240716
  Serious: Yes (Other)
  Sender: FDA-Public Use
  Company Number: US-BRISTOL-MYERS SQUIBB COMPANY-2024-053497

PATIENT
  Age: 67 Year
  Sex: Male

DRUGS (1)
  1. REVLIMID [Suspect]
     Active Substance: LENALIDOMIDE
     Indication: Plasma cell myeloma
     Dosage: QD X 21 DAYS ON 7 DAYS OFF
     Route: 048
     Dates: start: 20210305

REACTIONS (3)
  - Product dose omission issue [Unknown]
  - Diabetes mellitus [Unknown]
  - Product distribution issue [Unknown]
